FAERS Safety Report 5604852-9 (Version None)
Quarter: 2008Q1

REPORT INFORMATION
  Report Type: 
  Country: None (occurrence: None)
  Receive Date: 20080128
  Receipt Date: 20080116
  Transmission Date: 20080703
  Serious: Yes (Hospitalization)
  Sender: FDA-Public Use
  Company Number: FR-ELI_LILLY_AND_COMPANY-FR200711002758

PATIENT
  Sex: Female

DRUGS (8)
  1. PROZAC [Suspect]
     Dosage: UNK, UNKNOWN
     Route: 048
     Dates: start: 20070907, end: 20071011
  2. ACETAMINOPHEN [Concomitant]
     Dosage: UNK, UNKNOWN
     Route: 065
     Dates: start: 20070828, end: 20071011
  3. DI-ANTALVIC [Concomitant]
     Dosage: UNK, UNKNOWN
     Route: 048
     Dates: start: 20070903, end: 20070918
  4. NOROXIN [Concomitant]
     Dosage: UNK, UNKNOWN
     Route: 048
     Dates: start: 20071005, end: 20071010
  5. CLAMOXYL                                /NET/ [Concomitant]
     Dosage: UNK, UNKNOWN
     Route: 048
     Dates: start: 20070901, end: 20070910
  6. MOPRAL [Concomitant]
     Dosage: UNK, UNKNOWN
     Route: 048
     Dates: start: 20070828
  7. TEMODAL [Concomitant]
     Indication: GLIOBLASTOMA
     Dosage: UNK, OTHER
     Route: 048
     Dates: start: 20070823
  8. THERAPEUTIC RADIOPHARMACEUTICALS [Concomitant]
     Indication: GLIOBLASTOMA
     Route: 050
     Dates: start: 20070823, end: 20071004

REACTIONS (2)
  - CHOLESTASIS [None]
  - HEPATOCELLULAR INJURY [None]
